FAERS Safety Report 10424313 (Version 1)
Quarter: 2014Q3

REPORT INFORMATION
  Report Type: Spontaneous
  Country: US (occurrence: US)
  Receive Date: 20140902
  Receipt Date: 20140902
  Transmission Date: 20150326
  Serious: Yes (Hospitalization, Other)
  Sender: FDA-Public Use
  Company Number: US-ELI_LILLY_AND_COMPANY-US201408008535

PATIENT
  Age: 50 Year
  Sex: Female

DRUGS (11)
  1. KLOR-CON [Concomitant]
     Active Substance: POTASSIUM CHLORIDE
  2. XANAX [Concomitant]
     Active Substance: ALPRAZOLAM
  3. LEVEMIR [Concomitant]
     Active Substance: INSULIN DETEMIR
     Dosage: UNK, EACH EVENING
  4. INSULIN HUMAN [Suspect]
     Active Substance: INSULIN HUMAN
     Indication: TYPE 2 DIABETES MELLITUS
     Dosage: 125 U, EACH MORNING
     Route: 065
     Dates: start: 20140703, end: 20140718
  5. INSULIN HUMAN [Suspect]
     Active Substance: INSULIN HUMAN
     Dosage: 130 U, EACH EVENING
     Route: 065
     Dates: start: 20140703, end: 20140718
  6. INSULIN HUMAN [Suspect]
     Active Substance: INSULIN HUMAN
     Dosage: UNK
     Route: 065
  7. VICTOZA [Concomitant]
     Active Substance: LIRAGLUTIDE
  8. METFORMIN [Concomitant]
     Active Substance: METFORMIN HYDROCHLORIDE
     Dosage: 1000 MG, BID
  9. LEXAPRO [Concomitant]
     Active Substance: ESCITALOPRAM OXALATE
  10. COZAAR [Concomitant]
     Active Substance: LOSARTAN POTASSIUM
     Dosage: 100 MG, QD
  11. MULTIVITAMIN                       /00831701/ [Concomitant]
     Active Substance: VITAMINS

REACTIONS (11)
  - Feeling abnormal [Unknown]
  - Lethargy [Unknown]
  - Fluid retention [Unknown]
  - Chest discomfort [Unknown]
  - Thirst [Unknown]
  - Liver injury [Unknown]
  - Weight increased [Unknown]
  - Feeling abnormal [Unknown]
  - Peripheral swelling [Unknown]
  - Renal disorder [Unknown]
  - Incorrect dose administered [Recovered/Resolved]

NARRATIVE: CASE EVENT DATE: 20140714
